FAERS Safety Report 15825482 (Version 1)
Quarter: 2019Q1

REPORT INFORMATION
  Report Type: Spontaneous
  Country: US (occurrence: US)
  Receive Date: 20190115
  Receipt Date: 20190115
  Transmission Date: 20190417
  Serious: Yes (Disabling)
  Sender: FDA-Public Use
  Company Number: None

PATIENT
  Age: 39 Year
  Sex: Female
  Weight: 90 kg

DRUGS (8)
  1. DULOXETINE. [Concomitant]
     Active Substance: DULOXETINE
  2. ALLEGRA [Concomitant]
     Active Substance: FEXOFENADINE HYDROCHLORIDE
  3. LOPERAMIDE [Concomitant]
     Active Substance: LOPERAMIDE
  4. VITAMIN D [Concomitant]
     Active Substance: CHOLECALCIFEROL
  5. FIORICET [Concomitant]
     Active Substance: ACETAMINOPHEN\BUTALBITAL\CAFFEINE
  6. ATENOLOL. [Concomitant]
     Active Substance: ATENOLOL
     Indication: EX-TOBACCO USER
  7. CHANTIX [Suspect]
     Active Substance: VARENICLINE TARTRATE
     Indication: EX-TOBACCO USER
     Dates: start: 20171115, end: 20180106
  8. TRAMADOL. [Concomitant]
     Active Substance: TRAMADOL

REACTIONS (6)
  - Irritability [None]
  - Crying [None]
  - Mood altered [None]
  - Malaise [None]
  - Depressed mood [None]
  - Job change [None]

NARRATIVE: CASE EVENT DATE: 20171220
